FAERS Safety Report 8850463 (Version 4)
Quarter: 2012Q4

REPORT INFORMATION
  Report Type: 
  Country: US (occurrence: US)
  Receive Date: 20121019
  Receipt Date: 20121221
  Transmission Date: 20130627
  Serious: No
  Sender: FDA-Public Use
  Company Number: US-PFIZER INC-2012260491

PATIENT
  Sex: Female

DRUGS (1)
  1. LYRICA [Suspect]
     Dosage: 150 mg, 2x/day

REACTIONS (5)
  - Discomfort [Unknown]
  - Pain [Unknown]
  - Drug withdrawal syndrome [Unknown]
  - Hyperaesthesia [Unknown]
  - Muscular weakness [Unknown]
